FAERS Safety Report 20255045 (Version 11)
Quarter: 2024Q1

REPORT INFORMATION
  Report Type: Spontaneous
  Country: JP (occurrence: JP)
  Receive Date: 20211230
  Receipt Date: 20240105
  Transmission Date: 20240409
  Serious: Yes (Other)
  Sender: FDA-Public Use
  Company Number: JP-UNITED THERAPEUTICS-UNT-2021-026450

PATIENT
  Age: 2 Year
  Sex: Male
  Weight: 11.2 kg

DRUGS (18)
  1. UNITUXIN [Suspect]
     Active Substance: DINUTUXIMAB
     Indication: Neuroblastoma
     Dosage: 17.5 MG/M2, CYCLICAL (CYCLE 1)
     Route: 041
     Dates: start: 20211210, end: 20211213
  2. UNITUXIN [Suspect]
     Active Substance: DINUTUXIMAB
     Dosage: 17.5 MG/M2, CYCLICAL (CYCLE 2)
     Route: 041
     Dates: start: 20220112, end: 20220115
  3. UNITUXIN [Suspect]
     Active Substance: DINUTUXIMAB
     Dosage: 17.5 MG/M2, CYCLICAL (CYCLE 3)
     Route: 041
     Dates: start: 20220205, end: 20220208
  4. UNITUXIN [Suspect]
     Active Substance: DINUTUXIMAB
     Dosage: 17.5 MG/M2, CYCLICAL (CYCLE 4)
     Route: 041
     Dates: start: 20220314, end: 20220317
  5. UNITUXIN [Suspect]
     Active Substance: DINUTUXIMAB
     Dosage: 17.5 MG/M2, CYCLICAL (CYCLE 5)
     Route: 041
     Dates: start: 20220407, end: 20220410
  6. UNITUXIN [Suspect]
     Active Substance: DINUTUXIMAB
     Dosage: 17.5 MG/M2, CYCLICAL (CYCLE 6)
     Route: 041
     Dates: start: 20220510, end: 20220513
  7. TECELEUKIN [Suspect]
     Active Substance: TECELEUKIN
     Indication: Neuroblastoma
     Dosage: UNK
     Route: 065
     Dates: start: 20220105, end: 20220108
  8. TECELEUKIN [Suspect]
     Active Substance: TECELEUKIN
     Dosage: UNK
     Route: 065
     Dates: start: 20220112, end: 20220115
  9. TECELEUKIN [Suspect]
     Active Substance: TECELEUKIN
     Dosage: UNK
     Route: 065
     Dates: start: 20220307, end: 20220310
  10. TECELEUKIN [Suspect]
     Active Substance: TECELEUKIN
     Dosage: UNK
     Route: 065
     Dates: start: 20220314, end: 20220317
  11. TECELEUKIN [Suspect]
     Active Substance: TECELEUKIN
     Dosage: UNK
     Route: 065
     Dates: start: 20220503, end: 20220506
  12. TECELEUKIN [Suspect]
     Active Substance: TECELEUKIN
     Dosage: UNK
     Route: 065
     Dates: start: 20220510, end: 20220513
  13. FILGRASTIM [Concomitant]
     Active Substance: FILGRASTIM
     Indication: Neuroblastoma
     Dosage: 5 ?G/KG, QD
     Route: 065
     Dates: start: 20211207, end: 20211218
  14. FILGRASTIM [Concomitant]
     Active Substance: FILGRASTIM
     Dosage: 2 ?G/KG, QD
     Route: 065
     Dates: start: 20211219, end: 20211220
  15. FILGRASTIM [Concomitant]
     Active Substance: FILGRASTIM
     Dosage: 5 ?G/KG, QD
     Route: 065
     Dates: start: 20220202, end: 20220215
  16. FILGRASTIM [Concomitant]
     Active Substance: FILGRASTIM
     Dosage: 5 ?G/KG, QD
     Route: 065
     Dates: start: 20220404, end: 20220413
  17. FILGRASTIM [Concomitant]
     Active Substance: FILGRASTIM
     Dosage: 2 ?G/KG, QD
     Route: 065
     Dates: start: 20220414, end: 20220417
  18. MORPHINE [Concomitant]
     Active Substance: MORPHINE
     Indication: Prophylaxis
     Dosage: UNK
     Route: 065
     Dates: start: 20211210, end: 20211213

REACTIONS (23)
  - Liver function test increased [Recovered/Resolved]
  - Metastases to liver [Unknown]
  - Aspartate aminotransferase increased [Recovering/Resolving]
  - Capillary leak syndrome [Recovered/Resolved]
  - Fatigue [Unknown]
  - Pyrexia [Recovered/Resolved]
  - Pyrexia [Recovered/Resolved]
  - Pyrexia [Recovered/Resolved]
  - Pyrexia [Recovered/Resolved]
  - Pyrexia [Recovered/Resolved]
  - Pyrexia [Recovered/Resolved]
  - Pain [Recovering/Resolving]
  - Pain [Recovering/Resolving]
  - Gamma-glutamyltransferase increased [Recovered/Resolved]
  - C-reactive protein increased [Recovered/Resolved]
  - C-reactive protein increased [Recovering/Resolving]
  - C-reactive protein increased [Recovering/Resolving]
  - Hypoalbuminaemia [Recovered/Resolved]
  - Hypoalbuminaemia [Recovering/Resolving]
  - Hypoalbuminaemia [Recovered/Resolved]
  - Face oedema [Recovered/Resolved]
  - Face oedema [Recovered/Resolved]
  - Anaemia [Recovering/Resolving]

NARRATIVE: CASE EVENT DATE: 20211210
